FAERS Safety Report 7111671-3 (Version None)
Quarter: 2010Q4

REPORT INFORMATION
  Report Type: 
  Country: None (occurrence: None)
  Receive Date: 20101118
  Receipt Date: 20101108
  Transmission Date: 20110411
  Serious: Yes (Other)
  Sender: FDA-Public Use
  Company Number: US-PFIZER INC-2007000878

PATIENT
  Sex: Female
  Weight: 63.492 kg

DRUGS (15)
  1. CHANTIX [Suspect]
     Indication: SMOKING CESSATION THERAPY
     Dosage: UNK
     Dates: start: 20061124, end: 20090101
  2. CHANTIX [Suspect]
     Dosage: 0.5 MG, 1X/DAY
     Route: 048
     Dates: start: 20070101
  3. PAXIL [Concomitant]
     Indication: ANXIETY
  4. PROMETHAZINE HYDROCHLORIDE [Concomitant]
  5. RHINOCORT [Concomitant]
  6. ZYRTEC [Concomitant]
     Indication: SINUS DISORDER
  7. ACETYLSALICYLIC ACID SRT [Concomitant]
  8. PREMARIN [Concomitant]
  9. LOPERAMIDE [Concomitant]
  10. TIAZAC [Concomitant]
     Indication: CARDIAC DISORDER
  11. DIAZEPAM [Concomitant]
     Indication: SLEEP DISORDER
     Dosage: UNK
  12. AMITRIPTYLINE [Concomitant]
     Indication: DEPRESSION
     Dosage: UNK
  13. AMITRIPTYLINE [Concomitant]
     Indication: NEUROPATHY PERIPHERAL
  14. MECLIZINE [Concomitant]
     Indication: DIZZINESS
     Dosage: 2.5 MG, 2X/DAY
  15. SPIRIVA [Concomitant]
     Dosage: UNK

REACTIONS (10)
  - AGGRESSION [None]
  - BALANCE DISORDER [None]
  - EAR INJURY [None]
  - FALL [None]
  - HEARING IMPAIRED [None]
  - LIP AND/OR ORAL CAVITY CANCER [None]
  - NERVOUSNESS [None]
  - POLYURIA [None]
  - TONGUE CYST [None]
  - WEIGHT INCREASED [None]
